FAERS Safety Report 12157834 (Version 1)
Quarter: 2016Q1

REPORT INFORMATION
  Report Type: Spontaneous
  Country: US (occurrence: None)
  Receive Date: 20160307
  Receipt Date: 20160307
  Transmission Date: 20160526
  Serious: Yes (Other)
  Sender: FDA-Public Use
  Company Number: None

PATIENT
  Age: 67 Year
  Sex: Female
  Weight: 68.04 kg

DRUGS (8)
  1. ZANTAC [Concomitant]
     Active Substance: RANITIDINE HYDROCHLORIDE
  2. ALIGN [Concomitant]
     Active Substance: BIFIDOBACTERIUM LONGUM SUBSP. INFANTIS
  3. RESTASIS [Suspect]
     Active Substance: CYCLOSPORINE
     Indication: DRY EYE
     Dosage: 1 VIAL TWICE DAILY INTO THE EYE
     Route: 031
     Dates: start: 20150904, end: 20160306
  4. ENZONATATE (TESSALON) [Concomitant]
  5. HYOSCYAMINE ORAL [Concomitant]
  6. MULTIVITAMIN [Concomitant]
     Active Substance: VITAMINS
  7. CALCIUM [Concomitant]
     Active Substance: CALCIUM
  8. BUPROPION (WELLBUTRIN XL) [Concomitant]

REACTIONS (7)
  - Rhinorrhoea [None]
  - Lacrimation increased [None]
  - Upper-airway cough syndrome [None]
  - Throat tightness [None]
  - Seizure [None]
  - Sneezing [None]
  - Cough [None]

NARRATIVE: CASE EVENT DATE: 20160306
